FAERS Safety Report 23940399 (Version 7)
Quarter: 2024Q3

REPORT INFORMATION
  Report Type: Report from Study
  Country: US (occurrence: US)
  Receive Date: 20240605
  Receipt Date: 20240916
  Transmission Date: 20241017
  Serious: Yes (Other)
  Sender: UCB
  Company Number: US-UCBSA-2024022141

PATIENT
  Sex: Female

DRUGS (6)
  1. ROTIGOTINE [Suspect]
     Active Substance: ROTIGOTINE
     Indication: Parkinson^s disease
     Dosage: 2 MILLIGRAM, ONCE DAILY (QD)
     Route: 062
     Dates: start: 20190719, end: 2021
  2. ROTIGOTINE [Suspect]
     Active Substance: ROTIGOTINE
     Indication: Restless legs syndrome
     Dosage: 8 MILLIGRAM, ONCE DAILY (QD)
     Route: 062
     Dates: start: 2021
  3. SINEMET [Suspect]
     Active Substance: CARBIDOPA\LEVODOPA
     Indication: Hallucination
     Dosage: UNK
  4. SINEMET [Suspect]
     Active Substance: CARBIDOPA\LEVODOPA
     Indication: Delusion
     Dosage: 10 UNITS A DAY
  5. COMTAN [Concomitant]
     Active Substance: ENTACAPONE
     Indication: Product used for unknown indication
     Dosage: 200 MILLIGRAM, 5X/DAY
  6. CARBIDOPA\LEVODOPA [Concomitant]
     Active Substance: CARBIDOPA\LEVODOPA
     Indication: Product used for unknown indication
     Dosage: 25 MG/100 MG 5 TIMES PER DAY AND SUSTAINED RELIEF TABLET 25 MG/100 MG 2 TIMES PER DAY ON MID-MORNING

REACTIONS (36)
  - Disability [Not Recovered/Not Resolved]
  - Parkinson^s disease [Recovered/Resolved]
  - Fracture treatment [Recovered/Resolved]
  - Dystonia [Recovered/Resolved]
  - Hip fracture [Recovered/Resolved]
  - Fall [Recovered/Resolved]
  - Neuropathy peripheral [Recovered/Resolved]
  - Pneumonitis [Recovered/Resolved]
  - Hallucination [Recovered/Resolved]
  - Dyskinesia [Recovered/Resolved]
  - Fracture [Recovered/Resolved]
  - Rib fracture [Recovered/Resolved]
  - Tremor [Recovered/Resolved]
  - Pain [Recovered/Resolved]
  - Meniscus injury [Recovered/Resolved]
  - Ligament injury [Recovered/Resolved]
  - Arthroscopy [Recovered/Resolved]
  - Ligamentitis [Recovered/Resolved]
  - Tongue biting [Recovered/Resolved]
  - Bronchitis [Recovered/Resolved]
  - Arthritis [Recovered/Resolved]
  - Thermal burn [Recovered/Resolved]
  - Gait disturbance [Recovered/Resolved]
  - Contusion [Recovered/Resolved]
  - Blister [Recovered/Resolved]
  - Delusion [Recovered/Resolved]
  - Product availability issue [Unknown]
  - Therapy interrupted [Unknown]
  - Product adhesion issue [Unknown]
  - Product use issue [Unknown]
  - Insurance issue [Unknown]
  - Overdose [Unknown]
  - Joint swelling [Not Recovered/Not Resolved]
  - Hyperhidrosis [Not Recovered/Not Resolved]
  - Application site reaction [Not Recovered/Not Resolved]
  - Sensitive skin [Not Recovered/Not Resolved]

NARRATIVE: CASE EVENT DATE: 20210101
